FAERS Safety Report 24381920 (Version 1)
Quarter: 2024Q4

REPORT INFORMATION
  Report Type: Report from Study
  Country: US (occurrence: US)
  Receive Date: 20241001
  Receipt Date: 20241001
  Transmission Date: 20250114
  Serious: Yes (Other)
  Sender: ROCHE
  Company Number: US-ROCHE-3256260

PATIENT
  Age: 53 Year
  Sex: Female
  Weight: 82.6 kg

DRUGS (9)
  1. OCREVUS [Suspect]
     Active Substance: OCRELIZUMAB
     Indication: Relapsing multiple sclerosis
     Route: 042
     Dates: start: 20210219
  2. OCREVUS [Suspect]
     Active Substance: OCRELIZUMAB
     Dosage: DATE OF TREATMENT: 19/APR/2023, 20/OCT/2023, 22/OCT/2021, 19/FEB/2021, 12/MAR/2021, 21/OCT/2022
     Route: 042
  3. GABAPENTIN [Concomitant]
     Active Substance: GABAPENTIN
     Route: 065
  4. TRAZODONE [Concomitant]
     Active Substance: TRAZODONE HYDROCHLORIDE
     Route: 065
  5. METHYLPHENIDATE [Concomitant]
     Active Substance: METHYLPHENIDATE
     Route: 065
  6. ONABOTULINUMTOXINA [Concomitant]
     Active Substance: ONABOTULINUMTOXINA
     Route: 065
  7. ARIPIPRAZOLE [Concomitant]
     Active Substance: ARIPIPRAZOLE
     Route: 065
  8. BACLOFEN [Concomitant]
     Active Substance: BACLOFEN
     Route: 065
  9. FLUOXETINE [Concomitant]
     Active Substance: FLUOXETINE HYDROCHLORIDE
     Route: 065

REACTIONS (19)
  - Vitamin D deficiency [Unknown]
  - Multiple sclerosis [Unknown]
  - Off label use [Unknown]
  - Blood glucose decreased [Unknown]
  - Arthralgia [Unknown]
  - Muscle spasticity [Unknown]
  - Muscular weakness [Unknown]
  - Pain [Unknown]
  - Gait disturbance [Unknown]
  - Sciatica [Unknown]
  - Muscle spasms [Unknown]
  - Depression [Unknown]
  - Muscle twitching [Unknown]
  - Insomnia [Unknown]
  - Balance disorder [Unknown]
  - Vertigo [Unknown]
  - Dizziness [Unknown]
  - Pain in extremity [Unknown]
  - Neurogenic bladder [Unknown]
